FAERS Safety Report 8483817-6 (Version None)
Quarter: 2012Q3

REPORT INFORMATION
  Report Type: 
  Country: None (occurrence: None)
  Receive Date: 20120703
  Receipt Date: 20120627
  Transmission Date: 20120928
  Serious: No
  Sender: FDA-Public Use
  Company Number: US-BIOGENIDEC-2012BI023014

PATIENT
  Age: 35 Year
  Sex: Male

DRUGS (2)
  1. TYSABRI [Suspect]
     Indication: MULTIPLE SCLEROSIS
     Route: 042
     Dates: start: 20090406, end: 20120201
  2. TYSABRI [Suspect]
     Route: 042
     Dates: start: 20120201

REACTIONS (2)
  - DEPRESSION [None]
  - AMNESIA [None]
